FAERS Safety Report 7588952-2 (Version None)
Quarter: 2011Q3

REPORT INFORMATION
  Report Type: 
  Country: None (occurrence: None)
  Receive Date: 20110705
  Receipt Date: 20110616
  Transmission Date: 20111222
  Serious: Yes (Other)
  Sender: FDA-Public Use
  Company Number: US-BAYER-201037839NA

PATIENT
  Age: 24 Year
  Sex: Female
  Weight: 97.506 kg

DRUGS (7)
  1. CEFPROZIL [Concomitant]
     Dosage: UNK
     Dates: start: 20081216
  2. AXERT [Concomitant]
     Indication: ASTHMA
     Dosage: UNK
     Dates: start: 20000101, end: 20090101
  3. ALBUTEROL SULFATE AUTOHALER [Concomitant]
     Dosage: UNK UNK, PRN
     Dates: start: 20080101
  4. HYDROCODONE BITARTRATE [Concomitant]
     Dosage: UNK
     Dates: start: 20081207
  5. YAZ [Suspect]
     Indication: PREMENSTRUAL SYNDROME
     Dosage: UNK
     Route: 048
     Dates: start: 20080101, end: 20100501
  6. YAZ [Suspect]
     Indication: CONTRACEPTION
     Dosage: UNK
  7. TRIMETHOBENZAMIDE HCL [Concomitant]
     Dosage: UNK
     Dates: start: 20081207

REACTIONS (11)
  - CHOLELITHIASIS [None]
  - PROCTOCOLITIS [None]
  - ABDOMINAL PAIN UPPER [None]
  - IRRITABLE BOWEL SYNDROME [None]
  - CHOLECYSTITIS CHRONIC [None]
  - COW'S MILK INTOLERANCE [None]
  - GALLBLADDER INJURY [None]
  - CHOLECYSTITIS ACUTE [None]
  - GALLBLADDER CHOLESTEROLOSIS [None]
  - DIARRHOEA [None]
  - HAEMATOCHEZIA [None]
